FAERS Safety Report 15454725 (Version 1)
Quarter: 2018Q4

REPORT INFORMATION
  Report Type: Other
  Country: NL (occurrence: NL)
  Receive Date: 20181002
  Receipt Date: 20181002
  Transmission Date: 20190204
  Serious: Yes (Hospitalization, Other)
  Sender: FDA-Public Use
  Company Number: NL-APOTEX-2018AP021357

PATIENT
  Age: 51 Year
  Sex: Male
  Weight: 86 kg

DRUGS (3)
  1. ALLOPURINOL. [Suspect]
     Active Substance: ALLOPURINOL
     Indication: COLITIS ULCERATIVE
     Dosage: UNK
     Route: 065
  2. SALOFALK                           /00747601/ [Suspect]
     Active Substance: MESALAMINE
     Indication: COLITIS ULCERATIVE
     Route: 054
  3. MERCAPTOPURINE. [Suspect]
     Active Substance: MERCAPTOPURINE
     Indication: COLITIS ULCERATIVE
     Dosage: 150 MG, DAILY, 1.7 MG/KG DAILY
     Route: 065

REACTIONS (6)
  - Bone marrow failure [Unknown]
  - Off label use [Unknown]
  - Leukopenia [Recovering/Resolving]
  - Condition aggravated [Unknown]
  - Anaemia [Recovered/Resolved]
  - Pyrexia [Unknown]
